FAERS Safety Report 8274900-9 (Version None)
Quarter: 2012Q2

REPORT INFORMATION
  Report Type: 
  Country: None (occurrence: None)
  Receive Date: 20120411
  Receipt Date: 20120404
  Transmission Date: 20120825
  Serious: Yes (Other)
  Sender: FDA-Public Use
  Company Number: US-CELGENEUS-163-21880-12010557

PATIENT
  Age: 67 Year
  Sex: Male

DRUGS (10)
  1. REVLIMID [Suspect]
     Dosage: 1.25 MILLIGRAM
     Route: 048
     Dates: start: 20110816, end: 20110829
  2. REVLIMID [Suspect]
     Dosage: 1.25 MILLIGRAM
     Route: 048
     Dates: start: 20110913
  3. REVLIMID [Suspect]
     Dosage: 2.5 MILLIGRAM
     Route: 048
     Dates: start: 20110111, end: 20110207
  4. REVLIMID [Suspect]
     Dosage: 1.25 MILLIGRAM
     Route: 048
     Dates: start: 20110524, end: 20110601
  5. REVLIMID [Suspect]
     Dosage: 5 MILLIGRAM
     Route: 048
     Dates: start: 20101221, end: 20101225
  6. REVLIMID [Suspect]
     Dosage: 2.5 MILLIGRAM
     Route: 048
     Dates: start: 20110412, end: 20110502
  7. REVLIMID [Suspect]
     Dosage: 2.5 MILLIGRAM
     Route: 048
     Dates: start: 20110301, end: 20110314
  8. REVLIMID [Suspect]
     Dosage: 1.25 MILLIGRAM
     Route: 048
     Dates: start: 20110719, end: 20110725
  9. REVLIMID [Suspect]
     Dosage: 1.25 MILLIGRAM
     Route: 048
     Dates: start: 20110215, end: 20110224
  10. REVLIMID [Suspect]
     Dosage: 1.25 MILLIGRAM
     Route: 048
     Dates: start: 20110621, end: 20110627

REACTIONS (1)
  - TUMOUR FLARE [None]
